FAERS Safety Report 5884982-7 (Version None)
Quarter: 2008Q3

REPORT INFORMATION
  Report Type: 
  Country: None (occurrence: None)
  Receive Date: 20080916
  Receipt Date: 20080910
  Transmission Date: 20090109
  Serious: Yes (Other)
  Sender: FDA-Public Use
  Company Number: TW-ABBOTT-08P-153-0472949-00

PATIENT

DRUGS (3)
  1. REDUCTIL 10MG [Suspect]
     Indication: DRUG EXPOSURE DURING PREGNANCY
     Route: 064
  2. CONTRACEPTIVE [Concomitant]
     Indication: DRUG EXPOSURE DURING PREGNANCY
     Route: 064
  3. ALPIAZOLAM [Concomitant]
     Indication: DRUG EXPOSURE DURING PREGNANCY
     Route: 064

REACTIONS (6)
  - ABORTION INDUCED [None]
  - AGITATION [None]
  - DRUG EXPOSURE DURING PREGNANCY [None]
  - LETHARGY [None]
  - NAUSEA [None]
  - PALPITATIONS [None]
